FAERS Safety Report 8297927-X (Version None)
Quarter: 2012Q2

REPORT INFORMATION
  Report Type: 
  Country: None (occurrence: None)
  Receive Date: 20120419
  Receipt Date: 20120412
  Transmission Date: 20120825
  Serious: Yes (Other)
  Sender: FDA-Public Use
  Company Number: US-TEVA-327255USA

PATIENT
  Sex: Female

DRUGS (1)
  1. CLARAVIS [Suspect]
     Dosage: 1 TABLET ON ODD DAYS, 2 TABLETS ON EVEN DAYS
     Dates: start: 20120203, end: 20120305

REACTIONS (1)
  - UNINTENDED PREGNANCY [None]
